FAERS Safety Report 9736085 (Version 1)
Quarter: 2013Q4

REPORT INFORMATION
  Report Type: Report from Study
  Country: US (occurrence: US)
  Receive Date: 20131206
  Receipt Date: 20131206
  Transmission Date: 20140711
  Serious: Yes (Hospitalization)
  Sender: FDA-Public Use
  Company Number: US-ROCHE-1307402

PATIENT
  Age: 46 Year
  Sex: Female
  Weight: 91.35 kg

DRUGS (37)
  1. AVASTIN [Suspect]
     Indication: COLON CANCER
     Dosage: THE PATIENT RECEIVE 1 CYCLES OUT OF 12 CYCLES ON 21/DEC/2011; THERAPY INTRRUPTED ON 25/MAY/2012
     Route: 065
     Dates: start: 20111026, end: 20111219
  2. AVASTIN [Suspect]
     Indication: METASTASES TO LARGE INTESTINE
     Dosage: LAST DOSE OF CHEMOTHERAPY WAS ON 17 FEB 2010
     Route: 065
     Dates: start: 20090902, end: 20100303
  3. ZOFRAN [Concomitant]
     Indication: NAUSEA
     Dosage: PRN
     Route: 048
     Dates: start: 20100623
  4. ERBITUX [Concomitant]
     Dosage: WEEKLY
     Route: 065
     Dates: start: 20100630, end: 20110119
  5. ERBITUX [Concomitant]
     Route: 065
     Dates: start: 20100609
  6. VECTIBIX [Concomitant]
     Route: 065
     Dates: start: 20110127, end: 20110315
  7. NEXAVAR [Concomitant]
     Route: 048
     Dates: start: 20110319
  8. NEXAVAR [Concomitant]
     Dosage: INCREASED SOMET SUBSEQUENT TO STARTING 200 MG
     Route: 065
  9. ALBUTEROL INHALER [Concomitant]
     Dosage: 2 PUFFS 44 HOURS, PRN (90 MCG AEROSOL INHAILER)
     Route: 065
     Dates: start: 20100722
  10. ALBUTEROL INHALER [Concomitant]
     Dosage: 90 MCG AEROSOL INHAILER
     Route: 065
  11. CARTIA XT [Concomitant]
     Route: 048
     Dates: start: 20111108
  12. CHOLECALCIFEROL [Concomitant]
     Dosage: 5000 UNIT
     Route: 048
     Dates: start: 20110413
  13. FLEXERIL (UNITED STATES) [Concomitant]
     Indication: MUSCLE TIGHTNESS
     Dosage: PRN
     Route: 048
     Dates: start: 20110914
  14. FLEXERIL (UNITED STATES) [Concomitant]
     Indication: TENSION HEADACHE
  15. HYDROCORTISONE [Concomitant]
     Dosage: 1 - 4 X DAY WHILE AWAKE
     Route: 048
     Dates: start: 20110815
  16. LOMOTIL (UNITED STATES) [Concomitant]
     Dosage: 1-2  PRN, 2.2-0.025 MG
     Route: 048
     Dates: start: 20100901
  17. LORAZEPAM [Concomitant]
     Dosage: PRN
     Route: 048
     Dates: start: 20110727
  18. LOSARTAN [Concomitant]
     Dosage: PRN (50-12.5 MG)
     Route: 048
     Dates: start: 20110727
  19. LUNESTA [Concomitant]
     Dosage: QHS PRN
     Route: 048
     Dates: start: 20110511
  20. OMEPRAZOLE [Concomitant]
     Route: 048
     Dates: start: 20100924
  21. OXYCODONE [Concomitant]
     Indication: PAIN
     Dosage: 5-10MG  PRN
     Route: 048
     Dates: start: 20111209
  22. OXYCODONE/ACETAMINOPHEN [Concomitant]
     Indication: PAIN
     Dosage: PRN, 10/325 MG
     Route: 048
     Dates: start: 20111209
  23. PROMETHAZINE [Concomitant]
     Indication: NAUSEA
     Dosage: PRN
     Route: 048
     Dates: start: 20111209
  24. SINGULAIR [Concomitant]
     Route: 048
     Dates: start: 20110315
  25. PALONOSETRON [Concomitant]
     Route: 065
  26. DEXAMETHASONE [Concomitant]
     Route: 065
  27. ACETAMINOPHEN [Concomitant]
     Route: 065
  28. ATROPINE [Concomitant]
     Route: 065
  29. IRINOTECAN [Concomitant]
     Route: 065
  30. LEUCOVORIN [Concomitant]
     Route: 065
  31. FLUOROURACIL [Concomitant]
     Dosage: GIVEN CONCURRENTLY WITH 200 MG DOSE BELOW
     Route: 065
  32. FLUOROURACIL [Concomitant]
     Dosage: GIVEN CONCURRENTLY WITH 1980MG DOSE ABOVE
     Route: 065
  33. FERAHEME [Concomitant]
     Route: 065
     Dates: start: 20110914, end: 20110928
  34. PANITUMUMAB [Concomitant]
     Route: 065
     Dates: start: 20110127, end: 20110315
  35. CETUXIMAB [Concomitant]
     Route: 065
     Dates: start: 20100630, end: 20110119
  36. VECTIBIX [Concomitant]
     Route: 065
     Dates: start: 20110127
  37. COUMADIN [Concomitant]
     Route: 065
     Dates: start: 20090929, end: 20100303

REACTIONS (29)
  - Jaundice [Unknown]
  - Disease recurrence [Unknown]
  - Disease progression [Unknown]
  - Fatigue [Unknown]
  - Tension headache [Unknown]
  - Ocular icterus [Unknown]
  - Chest pain [Recovered/Resolved]
  - Abdominal pain [Unknown]
  - Muscle spasms [Unknown]
  - Back pain [Unknown]
  - Anxiety [Unknown]
  - Depression [Unknown]
  - Rash [Recovered/Resolved]
  - Swelling face [Unknown]
  - Constipation [Unknown]
  - Diarrhoea [Recovered/Resolved]
  - Nausea [Recovered/Resolved]
  - Vomiting [Unknown]
  - Dermatitis [Unknown]
  - Hypertension [Unknown]
  - Venous thrombosis [Unknown]
  - Oral disorder [Unknown]
  - Wound [Unknown]
  - Dehydration [Unknown]
  - Herpes zoster [Recovered/Resolved]
  - Urticaria [Recovered/Resolved]
  - Choledochoenterostomy [Unknown]
  - Urticaria [Unknown]
  - Pruritus allergic [Unknown]
